FAERS Safety Report 18983000 (Version 1)
Quarter: 2021Q1

REPORT INFORMATION
  Report Type: Spontaneous
  Country: US (occurrence: US)
  Receive Date: 20210226
  Receipt Date: 20210226
  Transmission Date: 20210420
  Serious: No
  Sender: FDA-Public Use
  Company Number: None

PATIENT
  Age: 56 Year
  Sex: Female
  Weight: 63 kg

DRUGS (4)
  1. TRIMETHOPRIM. [Suspect]
     Active Substance: TRIMETHOPRIM
     Indication: SEPSIS
     Route: 048
     Dates: start: 20200320, end: 20200330
  2. VITAMIN C [Concomitant]
     Active Substance: ASCORBIC ACID
  3. ALEVE [Concomitant]
     Active Substance: NAPROXEN SODIUM
  4. TYLENOL [Concomitant]
     Active Substance: ACETAMINOPHEN

REACTIONS (4)
  - Dumping syndrome [None]
  - Rash [None]
  - Discomfort [None]
  - Pruritus [None]

NARRATIVE: CASE EVENT DATE: 20200320
